FAERS Safety Report 19495724 (Version 1)
Quarter: 2021Q3

REPORT INFORMATION
  Report Type: Spontaneous
  Country: DE (occurrence: DE)
  Receive Date: 20210706
  Receipt Date: 20210706
  Transmission Date: 20211014
  Serious: Yes (Hospitalization)
  Sender: FDA-Public Use
  Company Number: DE-TEVA-2021-DE-1929135

PATIENT
  Age: 78 Year
  Sex: Female

DRUGS (10)
  1. CLOPIDOGREL [Suspect]
     Active Substance: CLOPIDOGREL BISULFATE
     Dosage: 75 MILLIGRAM DAILY; 1?0?0?0
     Route: 065
  2. SITAGLIPTIN [Concomitant]
     Active Substance: SITAGLIPTIN
     Dosage: 100 MILLIGRAM DAILY;  0?1?0?0,
  3. TORASEMID [Concomitant]
     Active Substance: TORSEMIDE
     Dosage: 10 MILLIGRAM DAILY; 1?0?0?0
  4. INSUMAN COMB [Concomitant]
     Active Substance: INSULIN HUMAN
     Dosage: 18 IU (INTERNATIONAL UNIT) DAILY; 1?0?0?0, SOLUTION FOR INJECTION / INFUSION
     Route: 058
  5. LOPERAMID [Concomitant]
     Active Substance: LOPERAMIDE
     Dosage: 1.86 MG, NEEDS
  6. AMLODIPIN [Concomitant]
     Active Substance: AMLODIPINE BESYLATE
     Dosage: 10 MILLIGRAM DAILY; 1?0?0?0,
  7. CANDESARTAN/HYDROCHLOROTHIAZID [Concomitant]
     Active Substance: CANDESARTAN CILEXETIL\HYDROCHLOROTHIAZIDE
     Dosage: 1 DOSAGE FORMS DAILY; 32|25 MG, 1?0?0?0
  8. ESCITALOPRAM [Suspect]
     Active Substance: ESCITALOPRAM OXALATE
     Dosage: 10 MILLIGRAM DAILY; 1?0?0?0,
     Route: 065
  9. METOPROLOL. [Concomitant]
     Active Substance: METOPROLOL
     Dosage: 200 MILLIGRAM DAILY; 1?0?1?0,
  10. INSULIN (HUMAN)/INSULIN?ISOPHAN (HUMAN) [Concomitant]
     Dosage: 22 IU (INTERNATIONAL UNIT) DAILY;  0?0?1?0, SOLUTION FOR INJECTION / INFUSION
     Route: 058

REACTIONS (2)
  - Haematochezia [Unknown]
  - Diarrhoea [Unknown]
